FAERS Safety Report 5685845-2 (Version None)
Quarter: 2008Q1

REPORT INFORMATION
  Report Type: 
  Country: None (occurrence: None)
  Receive Date: 20080328
  Receipt Date: 20080325
  Transmission Date: 20080703
  Serious: Yes (Hospitalization)
  Sender: FDA-Public Use
  Company Number: FR-BAYER-200815310GPV

PATIENT
  Age: 60 Year
  Sex: Female

DRUGS (1)
  1. BETASERON [Suspect]
     Indication: MULTIPLE SCLEROSIS
     Route: 058
     Dates: start: 20040101, end: 20080214

REACTIONS (11)
  - ABDOMINAL DISCOMFORT [None]
  - BLADDER DISORDER [None]
  - CONSTIPATION [None]
  - HYPERTHERMIA [None]
  - INFLAMMATION [None]
  - INJECTION SITE REACTION [None]
  - LEUKOCYTOSIS [None]
  - NEUTROPHILIA [None]
  - SENSORY DISTURBANCE [None]
  - ULTRASOUND ABDOMEN ABNORMAL [None]
  - VOMITING [None]
